FAERS Safety Report 5660502-7 (Version None)
Quarter: 2008Q1

REPORT INFORMATION
  Report Type: 
  Country: None (occurrence: None)
  Receive Date: 20080215
  Receipt Date: 20070523
  Transmission Date: 20080703
  Serious: Yes (Other)
  Sender: FDA-Public Use
  Company Number: 498959

PATIENT
  Age: 40 Year
  Sex: Female

DRUGS (1)
  1. NICARDIPINE HCL [Suspect]
     Indication: CEREBROVASCULAR SPASM
     Dosage: 3 MG DAILY INTRA-ARTERIAL
     Route: 013

REACTIONS (2)
  - BLOOD PRESSURE DECREASED [None]
  - HEART RATE INCREASED [None]
